FAERS Safety Report 6238471-0 (Version None)
Quarter: 2009Q2

REPORT INFORMATION
  Report Type: 
  Country: None (occurrence: None)
  Receive Date: 20090618
  Receipt Date: 20090602
  Transmission Date: 20091009
  Serious: Yes (Other)
  Sender: FDA-Public Use
  Company Number: 2009EU002001

PATIENT
  Sex: Male

DRUGS (5)
  1. PROGRAF [Suspect]
     Indication: LIVER TRANSPLANT
     Dates: end: 20090301
  2. ADVAGRAF(TACROLIMUS) CAPSULE [Suspect]
     Indication: LIVER TRANSPLANT
     Dosage: 3 MG, UID/QD, ORAL
     Route: 048
     Dates: start: 20090301
  3. CELLCEPT [Concomitant]
  4. LEVOTHYROX (LEVOTHRYOXINE SODIUM) [Concomitant]
  5. LAMICTAL [Concomitant]

REACTIONS (5)
  - HYPERKERATOSIS [None]
  - LIVER TRANSPLANT REJECTION [None]
  - NERVOUSNESS [None]
  - PRURITUS GENERALISED [None]
  - SQUAMOUS CELL CARCINOMA [None]
